FAERS Safety Report 25222678 (Version 1)
Quarter: 2025Q2

REPORT INFORMATION
  Report Type: Spontaneous
  Country: GB (occurrence: GB)
  Receive Date: 20250422
  Receipt Date: 20250422
  Transmission Date: 20250716
  Serious: Yes (Disabling)
  Sender: JOHNSON AND JOHNSON
  Company Number: GB-MHRA-TPP13008508C8710183YC1744709206544

PATIENT
  Age: 41 Year
  Sex: Male
  Weight: 78 kg

DRUGS (2)
  1. XARELTO [Suspect]
     Active Substance: RIVAROXABAN
     Indication: Ill-defined disorder
     Route: 048
     Dates: start: 20250415
  2. RIVAROXABAN [Concomitant]
     Active Substance: RIVAROXABAN
     Indication: Ill-defined disorder
     Dates: start: 20250317

REACTIONS (3)
  - Disturbance in attention [Not Recovered/Not Resolved]
  - Fatigue [Not Recovered/Not Resolved]
  - Dizziness [Unknown]
